FAERS Safety Report 5793566-0 (Version None)
Quarter: 2008Q2

REPORT INFORMATION
  Report Type: 
  Country: None (occurrence: None)
  Receive Date: 20080627
  Receipt Date: 20070906
  Transmission Date: 20081010
  Serious: No
  Sender: FDA-Public Use
  Company Number: A0679201A

PATIENT

DRUGS (1)
  1. VENTOLIN [Suspect]
     Indication: DRUG USE FOR UNKNOWN INDICATION
     Route: 055

REACTIONS (2)
  - ARRHYTHMIA [None]
  - PALPITATIONS [None]
